FAERS Safety Report 6100251-4 (Version None)
Quarter: 2009Q1

REPORT INFORMATION
  Report Type: 
  Country: None (occurrence: None)
  Receive Date: 20090303
  Receipt Date: 20090225
  Transmission Date: 20090719
  Serious: Yes (Hospitalization)
  Sender: FDA-Public Use
  Company Number: AU-GENENTECH-272200

PATIENT
  Sex: Male
  Weight: 72 kg

DRUGS (29)
  1. BLINDED ANTI-CD40 [Suspect]
     Indication: DIFFUSE LARGE B-CELL LYMPHOMA
     Dosage: 2 MG, X1
     Route: 042
     Dates: start: 20080909, end: 20080909
  2. BLINDED PLACEBO [Suspect]
     Indication: DIFFUSE LARGE B-CELL LYMPHOMA
     Dosage: 2 MG, X1
     Route: 042
     Dates: start: 20080909, end: 20080909
  3. BLINDED ANTI-CD40 [Suspect]
     Dosage: 4 MG, X1
     Route: 042
     Dates: start: 20080912, end: 20080912
  4. BLINDED PLACEBO [Suspect]
     Dosage: 4 MG, X1
     Route: 042
     Dates: start: 20080912, end: 20080912
  5. BLINDED ANTI-CD40 [Suspect]
     Dosage: 8 MG, X1
     Dates: start: 20080917, end: 20081103
  6. BLINDED PLACEBO [Suspect]
     Dosage: 8 MG, X1
     Dates: start: 20080917, end: 20081103
  7. RITUXAN [Suspect]
     Indication: DIFFUSE LARGE B-CELL LYMPHOMA
     Dosage: 375 MG/M2, Q3W
     Route: 042
     Dates: start: 20080908, end: 20080908
  8. RITUXAN [Suspect]
     Dosage: 375 MG/M2, Q3W
     Route: 042
     Dates: start: 20081003, end: 20081003
  9. RITUXAN [Suspect]
     Dosage: 375 MG/M2, Q3W
     Route: 042
     Dates: start: 20081027, end: 20081027
  10. ETOPOSIDE [Suspect]
     Indication: DIFFUSE LARGE B-CELL LYMPHOMA
     Dosage: 100 MG/M2, Q3W
     Route: 042
     Dates: start: 20080910, end: 20081027
  11. ETOPOSIDE [Suspect]
     Dosage: 100 MG/M2, Q3W
     Route: 042
     Dates: start: 20080911, end: 20081028
  12. ETOPOSIDE [Suspect]
     Dosage: 100 MG/M2, Q3W
     Route: 042
     Dates: start: 20080912, end: 20081029
  13. CARBOPLATIN [Suspect]
     Indication: DIFFUSE LARGE B-CELL LYMPHOMA
     Dosage: 5 UNK, Q3W
     Route: 042
     Dates: start: 20080911, end: 20081028
  14. IFOSFAMIDE [Suspect]
     Indication: DIFFUSE LARGE B-CELL LYMPHOMA
     Dosage: 5 G/M2, Q3W
     Route: 042
     Dates: start: 20080911, end: 20081028
  15. RED BLOOD CELLS [Concomitant]
     Indication: DRUG USE FOR UNKNOWN INDICATION
     Dosage: UNK
     Dates: start: 20080922
  16. ACETAMINOPHEN AND CODEINE PHOSPHATE [Concomitant]
     Indication: DRUG USE FOR UNKNOWN INDICATION
     Dosage: UNK
     Dates: start: 20080826
  17. COLOXYL WITH SENNA [Concomitant]
     Indication: DRUG USE FOR UNKNOWN INDICATION
     Dosage: UNK
     Dates: start: 20080301
  18. OXYCONTIN [Concomitant]
     Indication: DRUG USE FOR UNKNOWN INDICATION
     Dosage: UNK
     Dates: start: 20080905
  19. METOCLOPRAMIDE [Concomitant]
     Indication: DRUG USE FOR UNKNOWN INDICATION
     Dosage: UNK
     Dates: start: 20080904
  20. FILGRASTIM [Concomitant]
     Indication: DRUG USE FOR UNKNOWN INDICATION
     Dosage: UNK
     Dates: start: 20081022
  21. VALACYCLOVIR HCL [Concomitant]
     Indication: DRUG USE FOR UNKNOWN INDICATION
     Dosage: UNK
     Dates: start: 20080917
  22. SPAN-K [Concomitant]
     Indication: DRUG USE FOR UNKNOWN INDICATION
     Dosage: UNK
     Dates: start: 20080915
  23. MORPHINE [Concomitant]
     Indication: DRUG USE FOR UNKNOWN INDICATION
     Dosage: UNK
     Dates: start: 20080801
  24. NULYTELY [Concomitant]
     Indication: DRUG USE FOR UNKNOWN INDICATION
     Dosage: UNK
     Dates: start: 20080905
  25. MIRTAZAPINE [Concomitant]
     Indication: DRUG USE FOR UNKNOWN INDICATION
     Dosage: UNK
     Dates: start: 20080401
  26. ALLOPURINOL [Concomitant]
     Indication: DRUG USE FOR UNKNOWN INDICATION
     Dosage: UNK
     Dates: start: 19900101
  27. ESOMEPRAZOLE [Concomitant]
     Indication: DRUG USE FOR UNKNOWN INDICATION
     Dosage: UNK
     Dates: start: 20070101
  28. PLATELETS [Concomitant]
     Indication: DRUG USE FOR UNKNOWN INDICATION
     Dosage: UNK
     Dates: start: 20080921
  29. OXYCODONE [Concomitant]
     Indication: DRUG USE FOR UNKNOWN INDICATION
     Dosage: UNK
     Dates: start: 20080801

REACTIONS (1)
  - FEBRILE NEUTROPENIA [None]
